FAERS Safety Report 4770791-9 (Version None)
Quarter: 2005Q3

REPORT INFORMATION
  Report Type: 
  Country: None (occurrence: None)
  Receive Date: 20050914
  Receipt Date: 20050830
  Transmission Date: 20060218
  Serious: Yes (Hospitalization)
  Sender: FDA-Public Use
  Company Number: 12237

PATIENT
  Age: 50 Year
  Sex: Female

DRUGS (2)
  1. METHOTREXATE [Suspect]
     Indication: PSORIASIS
     Dosage: 17.5 MG PO
     Route: 048
  2. FOLIC ACID [Concomitant]

REACTIONS (4)
  - DYSSTASIA [None]
  - FALL [None]
  - VERTIGO [None]
  - VOMITING [None]
